FAERS Safety Report 8840453 (Version 1)
Quarter: 2012Q4

REPORT INFORMATION
  Report Type: 
  Country: US (occurrence: US)
  Receive Date: 20121015
  Receipt Date: 20121015
  Transmission Date: 20130627
  Serious: Yes (Other)
  Sender: FDA-Public Use
  Company Number: US-ROCHE-1140568

PATIENT
  Sex: Female
  Weight: 24.3 kg

DRUGS (7)
  1. PROTROPIN [Suspect]
     Indication: GROWTH HORMONE DEFICIENCY
     Dosage: diluted with 2 ml
     Route: 058
     Dates: start: 1994, end: 20001214
  2. PROTROPIN [Suspect]
     Indication: HYPOTHYROIDISM
  3. SYNTHROID [Concomitant]
     Route: 065
  4. SINGULAIR [Concomitant]
  5. NASACORT [Concomitant]
  6. VANCERIL [Concomitant]
  7. ZYRTEC [Concomitant]

REACTIONS (3)
  - Tonsillitis [Unknown]
  - Weight increased [Unknown]
  - Increased appetite [Unknown]
